FAERS Safety Report 21814692 (Version 1)
Quarter: 2023Q1

REPORT INFORMATION
  Report Type: Report from Study
  Country: US (occurrence: US)
  Receive Date: 20230104
  Receipt Date: 20230104
  Transmission Date: 20230417
  Serious: No
  Sender: FDA-Public Use
  Company Number: US-ABBVIE-4224887

PATIENT
  Sex: Female

DRUGS (1)
  1. SKYRIZI [Suspect]
     Active Substance: RISANKIZUMAB-RZAA
     Indication: Psoriasis
     Dosage: DOSE 150 MG AT WEEK 0, WEEK 4 AND EVERY 12 WEEKS THEREAFTER-
     Route: 058
     Dates: start: 202211

REACTIONS (1)
  - COVID-19 [Unknown]
